FAERS Safety Report 4335949-1 (Version None)
Quarter: 2004Q2

REPORT INFORMATION
  Report Type: 
  Country: None (occurrence: None)
  Receive Date: 20040406
  Receipt Date: 20040401
  Transmission Date: 20050107
  Serious: Yes (Death, Other)
  Sender: FDA-Public Use
  Company Number: TCI2004A01354

PATIENT
  Age: 89 Year
  Sex: Male

DRUGS (3)
  1. LEUPROLIDE ACETATE [Suspect]
     Dosage: 11.25 MG  SUBCUTANEOUS (11.25 MG, 1 IN 12 WK)
     Route: 058
     Dates: start: 20030101
  2. LEUPLIN FOR INJECTION KIT3.75 (LEUPROLIDE ACETATE) [Suspect]
     Indication: PROSTATE CANCER
     Dosage: 3.75 MG (3.75 MG, 1 IN 28 D) , SUBCUTANEOUS , MORE THAN 2 YEARS AGO
     Route: 058
     Dates: start: 20030101
  3. LEVOFLOXACIN [Concomitant]

REACTIONS (2)
  - DYSPNOEA [None]
  - INTERSTITIAL LUNG DISEASE [None]
